FAERS Safety Report 7277607-X (Version None)
Quarter: 2011Q1

REPORT INFORMATION
  Report Type: 
  Country: None (occurrence: None)
  Receive Date: 20110207
  Receipt Date: 20110130
  Transmission Date: 20110831
  Serious: Yes (Hospitalization)
  Sender: FDA-Public Use
  Company Number: US-SANOFI-AVENTIS-2011SA006684

PATIENT
  Age: 78 Year
  Sex: Female

DRUGS (4)
  1. OPTICLICK [Suspect]
  2. LANTUS [Suspect]
     Dosage: DOSE:30 UNIT(S)
     Route: 058
  3. HUMALOG [Concomitant]
  4. DIURETICS [Concomitant]
     Indication: FLUID RETENTION

REACTIONS (3)
  - RENAL IMPAIRMENT [None]
  - FLUID RETENTION [None]
  - BLOOD POTASSIUM ABNORMAL [None]
